FAERS Safety Report 9275746 (Version 7)
Quarter: 2013Q4

REPORT INFORMATION
  Report Type: Spontaneous
  Country: US (occurrence: US)
  Receive Date: 20130507
  Receipt Date: 20131007
  Transmission Date: 20140711
  Serious: Yes (Other)
  Sender: FDA-Public Use
  Company Number: US-JNJFOC-20130501486

PATIENT
  Age: 61 Year
  Sex: Male

DRUGS (18)
  1. XARELTO [Suspect]
     Indication: CEREBROVASCULAR ACCIDENT PROPHYLAXIS
     Route: 048
     Dates: start: 20130325, end: 20130422
  2. XARELTO [Suspect]
     Indication: ATRIAL FIBRILLATION
     Route: 048
     Dates: start: 20130325, end: 20130422
  3. PROTONIX [Concomitant]
     Route: 065
  4. VITAMIN D [Concomitant]
     Route: 065
  5. VITAMIN C [Concomitant]
     Route: 065
  6. NIFEREX [Concomitant]
     Route: 065
  7. KLOR-CON [Concomitant]
     Route: 065
  8. CARVEDILOL [Concomitant]
     Route: 065
  9. SPIRONOLACTONE [Concomitant]
     Route: 065
  10. MIRAPEX [Concomitant]
     Dosage: AT BEDTIME
     Route: 065
  11. OXY IR [Concomitant]
     Dosage: AS NEEDED
     Route: 065
  12. QVAR [Concomitant]
     Dosage: 2 PUFFS
     Route: 065
  13. VENTOLIN [Concomitant]
     Dosage: AS NEEDED
     Route: 065
  14. ASA [Concomitant]
     Route: 065
  15. BROVANA [Concomitant]
     Dosage: 1 INHALATION
     Route: 065
  16. COLACE [Concomitant]
     Route: 065
  17. LASIX [Concomitant]
     Dosage: AS NEEDED
     Route: 065
  18. PACERONE [Concomitant]
     Route: 065

REACTIONS (10)
  - Gastrointestinal haemorrhage [Unknown]
  - Anaemia [Unknown]
  - Hyperglycaemia [Unknown]
  - Balance disorder [Unknown]
  - Tremor [Unknown]
  - Dizziness [Unknown]
  - Dry mouth [Unknown]
  - Drooling [Unknown]
  - Visual impairment [Unknown]
  - Thirst [Unknown]
